FAERS Safety Report 19122123 (Version 1)
Quarter: 2021Q2

REPORT INFORMATION
  Report Type: Spontaneous
  Country: GB (occurrence: GB)
  Receive Date: 20210412
  Receipt Date: 20210412
  Transmission Date: 20210717
  Serious: Yes (Disabling, Other)
  Sender: FDA-Public Use
  Company Number: GB-DRREDDYS-GER/UKI/21/0134053

PATIENT
  Age: 42 Year
  Sex: Female
  Weight: 76.2 kg

DRUGS (9)
  1. FERROUS FUMARATE [Concomitant]
     Active Substance: FERROUS FUMARATE
     Indication: PRODUCT USED FOR UNKNOWN INDICATION
  2. DULOXETINE. [Concomitant]
     Active Substance: DULOXETINE
     Indication: PRODUCT USED FOR UNKNOWN INDICATION
  3. ATORVASTATIN [Concomitant]
     Active Substance: ATORVASTATIN
     Indication: PRODUCT USED FOR UNKNOWN INDICATION
  4. SOMINEX [Concomitant]
     Active Substance: DIPHENHYDRAMINE HYDROCHLORIDE
     Indication: PRODUCT USED FOR UNKNOWN INDICATION
  5. PREGABALIN. [Suspect]
     Active Substance: PREGABALIN
     Indication: SCIATICA
     Dosage: DIFFERENT AMOUNTS OVER SEVERAL YEARS FROM UPTO TO THE MAXIMUM DOSE DOWN TO 50MG
     Route: 048
     Dates: start: 2016, end: 2020
  6. OMEPRAZOLE. [Concomitant]
     Active Substance: OMEPRAZOLE
     Indication: PRODUCT USED FOR UNKNOWN INDICATION
  7. ALVERINE CITRATE [Concomitant]
     Active Substance: ALVERINE CITRATE
     Indication: PRODUCT USED FOR UNKNOWN INDICATION
  8. CODEINE [Concomitant]
     Active Substance: CODEINE
     Indication: PRODUCT USED FOR UNKNOWN INDICATION
  9. DICLOFENAC [Concomitant]
     Active Substance: DICLOFENAC
     Indication: PRODUCT USED FOR UNKNOWN INDICATION

REACTIONS (11)
  - Anxiety [Not Recovered/Not Resolved]
  - Intrusive thoughts [Unknown]
  - Lethargy [Not Recovered/Not Resolved]
  - Palpitations [Recovering/Resolving]
  - Feeling of despair [Unknown]
  - Weight increased [Unknown]
  - Panic disorder [Not Recovered/Not Resolved]
  - Apathy [Unknown]
  - Restless legs syndrome [Recovering/Resolving]
  - Depression [Unknown]
  - Suicidal ideation [Recovering/Resolving]
